FAERS Safety Report 5028218-8 (Version None)
Quarter: 2006Q2

REPORT INFORMATION
  Report Type: 
  Country: None (occurrence: None)
  Receive Date: 20060613
  Receipt Date: 20060601
  Transmission Date: 20061013
  Serious: Yes (Hospitalization, Other)
  Sender: FDA-Public Use
  Company Number: 2006071773

PATIENT
  Age: 29 Year
  Sex: Female

DRUGS (1)
  1. PROVERA [Suspect]
     Indication: DYSFUNCTIONAL UTERINE BLEEDING
     Dosage: ORAL
     Route: 048

REACTIONS (4)
  - ASTHMA [None]
  - HYPERSENSITIVITY [None]
  - INFERTILITY FEMALE [None]
  - REACTION TO DRUG EXCIPIENTS [None]
